FAERS Safety Report 7179722-8 (Version None)
Quarter: 2010Q4

REPORT INFORMATION
  Report Type: 
  Country: None (occurrence: None)
  Receive Date: 20101209
  Receipt Date: 20101124
  Transmission Date: 20110411
  Serious: Yes (Death, Hospitalization)
  Sender: FDA-Public Use
  Company Number: KV200900712

PATIENT
  Age: 71 Year
  Sex: Male
  Weight: 73 kg

DRUGS (14)
  1. MORPHINE SULFATE [Suspect]
     Indication: BREAKTHROUGH PAIN
     Dosage: 6 MG, EVERY HOUR PRN, ORAL
     Route: 048
  2. MORPHINE SULFATE [Suspect]
     Indication: PAIN
     Dosage: 30 MG, BID, ORAL
     Route: 048
     Dates: end: 20071223
  3. TYLENOL /00020001/ (PARACETAMOL) [Concomitant]
  4. ALBUTEROL /00139501/ (SALBUTAMOL) [Concomitant]
  5. COLACE (DOCUSATE SODIUM) [Concomitant]
  6. TEVETEN /01347301/ (EPROSARTAN) [Concomitant]
  7. NEXIUM [Concomitant]
  8. PROSOM (ESTAZOLAM) [Concomitant]
  9. CHERATUSSIN AC (CODEINE, GUAIFENESIN) [Concomitant]
  10. HYDROCODONE BITARTRATE AND ACETAMINOPHEN (HYDROCODONE BITARTRATE, PARA [Concomitant]
  11. SYNTHROID [Concomitant]
  12. METFORMIN HCL [Concomitant]
  13. CARAFATE [Concomitant]
  14. CELEBREX [Concomitant]

REACTIONS (11)
  - CACHEXIA [None]
  - DEHYDRATION [None]
  - DYSPNOEA [None]
  - LUNG ADENOCARCINOMA STAGE III [None]
  - MUSCULOSKELETAL PAIN [None]
  - PAIN [None]
  - PALLOR [None]
  - RESPIRATORY DISTRESS [None]
  - TACHYCARDIA [None]
  - TACHYPNOEA [None]
  - TERMINAL STATE [None]
